FAERS Safety Report 15371806 (Version 1)
Quarter: 2018Q4

REPORT INFORMATION
  Report Type: Spontaneous
  Country: ZA (occurrence: ZA)
  Receive Date: 20180911
  Receipt Date: 20180911
  Transmission Date: 20190204
  Serious: Yes (Death)
  Sender: FDA-Public Use
  Company Number: ZA-PFIZER INC-2018365252

PATIENT
  Age: 91 Year
  Sex: Male

DRUGS (9)
  1. PREXUM [Suspect]
     Active Substance: PERINDOPRIL ERBUMINE
     Dosage: 4 MG, UNK
  2. CELEBREX [Suspect]
     Active Substance: CELECOXIB
     Indication: ARTHRITIS
     Dosage: 200 MG, UNK
  3. DOPAQUEL [Suspect]
     Active Substance: QUETIAPINE
     Dosage: 25 MG, UNK
  4. SOVENOR [Suspect]
     Active Substance: BUPRENORPHINE
     Dosage: 10 MG, UNK
  5. TOPZOLE [Suspect]
     Active Substance: PANTOPRAZOLE SODIUM
     Dosage: 40 MG, UNK
  6. UROMAX (DOXAZOSIN MESILATE) [Suspect]
     Active Substance: DOXAZOSIN MESYLATE
     Dosage: 0.4 MG, UNK
  7. ADCO MIRTERON [Suspect]
     Active Substance: MIRTAZAPINE
     Dosage: 30 MG, UNK
  8. IVEDAL [Suspect]
     Active Substance: ZOLPIDEM TARTRATE
     Dosage: 10 MG, UNK
  9. ECOTRIN [Suspect]
     Active Substance: ASPIRIN
     Dosage: 81 MG, UNK

REACTIONS (1)
  - Death [Fatal]

NARRATIVE: CASE EVENT DATE: 201807
